FAERS Safety Report 17069766 (Version 1)
Quarter: 2019Q4

REPORT INFORMATION
  Report Type: Spontaneous
  Country: US (occurrence: US)
  Receive Date: 20191125
  Receipt Date: 20191125
  Transmission Date: 20200122
  Serious: Yes (Disabling, Other)
  Sender: FDA-Public Use
  Company Number: US-DRREDDYS-USA/USA/19/0116190

PATIENT
  Age: 36 Year
  Sex: Male

DRUGS (1)
  1. FENTANYL CITRATE. [Suspect]
     Active Substance: FENTANYL CITRATE
     Indication: PRODUCT USED FOR UNKNOWN INDICATION

REACTIONS (17)
  - Ophthalmoplegia [Recovered/Resolved]
  - Eyelid ptosis [Unknown]
  - Disorientation [Recovering/Resolving]
  - Drug abuse [Unknown]
  - Amaurosis [Not Recovered/Not Resolved]
  - Cerebral ischaemia [Unknown]
  - Periorbital oedema [Unknown]
  - Ocular ischaemic syndrome [Unknown]
  - Conjunctival oedema [Unknown]
  - Confusional state [Unknown]
  - Aspartate aminotransferase increased [Unknown]
  - Overdose [Unknown]
  - Ophthalmic artery thrombosis [Unknown]
  - Toxicity to various agents [Unknown]
  - Leukocytosis [Unknown]
  - Anterograde amnesia [Recovering/Resolving]
  - Retinopathy [Unknown]
